FAERS Safety Report 4663905-2 (Version None)
Quarter: 2005Q2

REPORT INFORMATION
  Report Type: 
  Country: None (occurrence: None)
  Receive Date: 20050511
  Receipt Date: 20050401
  Transmission Date: 20051028
  Serious: Yes (Hospitalization)
  Sender: FDA-Public Use
  Company Number: 382014

PATIENT
  Age: 60 Year
  Sex: Female
  Weight: 81.6 kg

DRUGS (3)
  1. PEGASYS [Suspect]
     Indication: HEPATITIS C
     Dosage: 180 MCG 1 PER DAY SUBCUTANEOUS
     Route: 058
     Dates: start: 20031215, end: 20050306
  2. COPEGUS [Suspect]
     Indication: HEPATITIS C
     Dosage: 1000 MG DAILY ORAL
     Route: 048
     Dates: start: 20031215, end: 20050306
  3. ACETAMINOPHEN [Concomitant]

REACTIONS (13)
  - ALOPECIA [None]
  - ANAEMIA [None]
  - ASTHENIA [None]
  - DECREASED APPETITE [None]
  - DEPRESSION [None]
  - DIARRHOEA [None]
  - DRY EYE [None]
  - DYSGEUSIA [None]
  - EYE INFECTION [None]
  - FATIGUE [None]
  - OVERDOSE [None]
  - PYREXIA [None]
  - WEIGHT DECREASED [None]
